FAERS Safety Report 14510196 (Version 1)
Quarter: 2018Q1

REPORT INFORMATION
  Report Type: Spontaneous
  Country: CZ (occurrence: CZ)
  Receive Date: 20180209
  Receipt Date: 20180209
  Transmission Date: 20180509
  Serious: Yes (Other)
  Sender: FDA-Public Use
  Company Number: CZ-WEST-WARD PHARMACEUTICALS CORP.-CZ-H14001-18-00766

PATIENT
  Age: 54 Year
  Sex: Female

DRUGS (1)
  1. METHYLPREDNISOLONE. [Suspect]
     Active Substance: METHYLPREDNISOLONE
     Indication: SYSTEMIC SCLERODERMA
     Dosage: 4 MG, QD
     Route: 065

REACTIONS (2)
  - Off label use [Unknown]
  - Antineutrophil cytoplasmic antibody increased [Unknown]
